FAERS Safety Report 16535804 (Version 1)
Quarter: 2019Q3

REPORT INFORMATION
  Report Type: Spontaneous
  Country: US (occurrence: US)
  Receive Date: 20190705
  Receipt Date: 20190705
  Transmission Date: 20191004
  Serious: No
  Sender: FDA-Public Use
  Company Number: US-009507513-1907USA002377

PATIENT
  Sex: Female

DRUGS (1)
  1. NEXPLANON [Suspect]
     Active Substance: ETONOGESTREL
     Indication: CONTRACEPTION
     Dosage: 1 DOSAGE FORM, LEFT ARM
     Route: 059
     Dates: start: 201806

REACTIONS (6)
  - Menstruation delayed [Recovering/Resolving]
  - Menstruation irregular [Recovering/Resolving]
  - Vaginal haemorrhage [Recovering/Resolving]
  - Hormone level abnormal [Recovering/Resolving]
  - Abdominal pain [Recovering/Resolving]
  - Libido decreased [Recovering/Resolving]
